FAERS Safety Report 10902097 (Version 1)
Quarter: 2015Q1

REPORT INFORMATION
  Report Type: Spontaneous
  Country: US (occurrence: US)
  Receive Date: 20150310
  Receipt Date: 20150310
  Transmission Date: 20150721
  Serious: No
  Sender: FDA-Public Use
  Company Number: US-BAUSCH-BL-2014-008042

PATIENT
  Sex: Male

DRUGS (1)
  1. DESMOPRESSIN ACETATE NASAL SOLUTION 0.01% [Suspect]
     Active Substance: DESMOPRESSIN ACETATE
     Indication: DIABETES INSIPIDUS
     Dosage: 2 SPRAYS IN THE MORNING, 2 SPRAYS AT BEDTIME
     Route: 045
     Dates: start: 1993

REACTIONS (1)
  - Drug ineffective [Recovered/Resolved]
